FAERS Safety Report 17050302 (Version 2)
Quarter: 2019Q4

REPORT INFORMATION
  Report Type: Spontaneous
  Country: US (occurrence: US)
  Receive Date: 20191119
  Receipt Date: 20191209
  Transmission Date: 20200122
  Serious: No
  Sender: FDA-Public Use
  Company Number: US-009507513-1911USA002060

PATIENT
  Sex: Female

DRUGS (11)
  1. LISINOPRIL. [Concomitant]
     Active Substance: LISINOPRIL
     Dosage: UNK, EVERY OTHER DAY
  2. FOSAMAX [Suspect]
     Active Substance: ALENDRONATE SODIUM
     Indication: OSTEOPOROSIS
     Dosage: 70 MILLIGRAM ONCE WEEKLY
     Route: 048
     Dates: start: 2012
  3. BUPRENORPHINE. [Concomitant]
     Active Substance: BUPRENORPHINE
     Dosage: 300 MILLIGRAM
  4. VENTOLIN [Concomitant]
     Active Substance: ALBUTEROL SULFATE
     Dosage: UNK, AS NEEDED
  5. ASPIRIN. [Concomitant]
     Active Substance: ASPIRIN
     Dosage: UNK, DAILY
  6. SINGULAIR [Concomitant]
     Active Substance: MONTELUKAST SODIUM
  7. IBUPROFEN. [Concomitant]
     Active Substance: IBUPROFEN
     Dosage: 600 MILLIGRAM, TWICE PER DAY
  8. ALBUTEROL. [Concomitant]
     Active Substance: ALBUTEROL
  9. LIDOCAINE. [Concomitant]
     Active Substance: LIDOCAINE
     Dosage: FORMULATION: PATCH
     Dates: start: 201905
  10. XANAX [Concomitant]
     Active Substance: ALPRAZOLAM
     Dosage: 1 MILLIGRAM, NIGHT TIME
  11. CYMBALTA [Concomitant]
     Active Substance: DULOXETINE HYDROCHLORIDE

REACTIONS (8)
  - Loose tooth [Not Recovered/Not Resolved]
  - Tooth extraction [Unknown]
  - Tooth fracture [Not Recovered/Not Resolved]
  - Dysphagia [Unknown]
  - Tooth discolouration [Not Recovered/Not Resolved]
  - Back pain [Unknown]
  - Jaw operation [Unknown]
  - Lip injury [Unknown]

NARRATIVE: CASE EVENT DATE: 2017
